FAERS Safety Report 5963488-0 (Version None)
Quarter: 2008Q4

REPORT INFORMATION
  Report Type: 
  Country: None (occurrence: None)
  Receive Date: 20081124
  Receipt Date: 20081112
  Transmission Date: 20090506
  Serious: Yes (Death, Hospitalization, Other)
  Sender: FDA-Public Use
  Company Number: US-AMGEN-US312869

PATIENT
  Sex: Female
  Weight: 123 kg

DRUGS (4)
  1. NPLATE [Suspect]
     Indication: IDIOPATHIC THROMBOCYTOPENIC PURPURA
     Route: 058
     Dates: start: 20080909, end: 20080930
  2. PREDNISONE TAB [Suspect]
     Indication: IDIOPATHIC THROMBOCYTOPENIC PURPURA
     Route: 048
     Dates: start: 20040714
  3. OXYCONTIN [Concomitant]
     Route: 048
  4. LORTAB [Concomitant]
     Route: 048

REACTIONS (9)
  - ABDOMINAL PAIN [None]
  - BRAIN OEDEMA [None]
  - CEREBRAL HAEMATOMA [None]
  - CEREBRAL HAEMORRHAGE [None]
  - DRUG INEFFECTIVE [None]
  - HAEMATEMESIS [None]
  - HYDRONEPHROSIS [None]
  - IDIOPATHIC THROMBOCYTOPENIC PURPURA [None]
  - SMALL INTESTINAL HAEMORRHAGE [None]
